FAERS Safety Report 11338512 (Version 1)
Quarter: 2015Q3

REPORT INFORMATION
  Report Type: Spontaneous
  Country: US (occurrence: US)
  Receive Date: 20150803
  Receipt Date: 20150803
  Transmission Date: 20151125
  Serious: No
  Sender: FDA-Public Use
  Company Number: US-ELI_LILLY_AND_COMPANY-US200709006847

PATIENT
  Age: 7 Year
  Sex: Female
  Weight: 24.13 kg

DRUGS (5)
  1. STRATTERA [Suspect]
     Active Substance: ATOMOXETINE HYDROCHLORIDE
     Dosage: 36 MG, DAILY (1/D)
     Route: 048
     Dates: start: 200706, end: 200709
  2. DEPAKOTE [Concomitant]
     Active Substance: DIVALPROEX SODIUM
     Route: 048
  3. RISPERDAL [Concomitant]
     Active Substance: RISPERIDONE
     Indication: IRRITABILITY
     Dosage: UNK, UNK
     Dates: start: 200707, end: 200709
  4. DEPAKOTE [Concomitant]
     Active Substance: DIVALPROEX SODIUM
     Indication: AGGRESSION
     Dosage: 250 MG, EACH EVENING
     Dates: start: 20070920
  5. STRATTERA [Suspect]
     Active Substance: ATOMOXETINE HYDROCHLORIDE
     Indication: ATTENTION DEFICIT/HYPERACTIVITY DISORDER
     Dosage: 25 MG, DAILY (1/D)
     Dates: start: 200602, end: 200606

REACTIONS (8)
  - Suicidal ideation [Recovered/Resolved]
  - Anger [Recovered/Resolved]
  - Conduct disorder [Not Recovered/Not Resolved]
  - Aggression [Not Recovered/Not Resolved]
  - Mood swings [Recovered/Resolved]
  - Fatigue [Recovered/Resolved]
  - Irritability [Not Recovered/Not Resolved]
  - Parent-child problem [Not Recovered/Not Resolved]

NARRATIVE: CASE EVENT DATE: 200602
